FAERS Safety Report 8380158-2 (Version None)
Quarter: 2012Q2

REPORT INFORMATION
  Report Type: 
  Country: None (occurrence: None)
  Receive Date: 20120523
  Receipt Date: 20120514
  Transmission Date: 20120825
  Serious: Yes (Hospitalization)
  Sender: FDA-Public Use
  Company Number: US-ASTRAZENECA-2012SE08951

PATIENT
  Age: 54 Year
  Sex: Male

DRUGS (2)
  1. DOXYCYCLINE HYCLATE [Concomitant]
     Route: 048
  2. CAPRELSA [Suspect]
     Indication: THYROID CANCER
     Route: 048
     Dates: start: 20120121

REACTIONS (5)
  - ASCITES [None]
  - PAIN IN EXTREMITY [None]
  - RASH [None]
  - ACNE [None]
  - GASTROINTESTINAL HAEMORRHAGE [None]
